FAERS Safety Report 12191333 (Version 3)
Quarter: 2017Q1

REPORT INFORMATION
  Report Type: Spontaneous
  Country: CZ (occurrence: CZ)
  Receive Date: 20160318
  Receipt Date: 20170116
  Transmission Date: 20170428
  Serious: Yes (Death, Hospitalization, Other)
  Sender: FDA-Public Use
  Company Number: CZ-ASTELLAS-2016US010027

PATIENT
  Age: 62 Year
  Sex: Male

DRUGS (14)
  1. PREDNISONE. [Suspect]
     Active Substance: PREDNISONE
     Indication: HEART TRANSPLANT
     Dosage: UNK UNK, UNKNOWN FREQ.
     Route: 065
  2. MYCOPHENOLATE MOFETIL. [Suspect]
     Active Substance: MYCOPHENOLATE MOFETIL
     Indication: HEART TRANSPLANT
     Dosage: UNK UNK, UNKNOWN FREQ.
     Route: 065
  3. VALGANCICLOVIR. [Concomitant]
     Active Substance: VALGANCICLOVIR
     Dosage: UNK, UNKNOWN FREQ. (DOSE REDUCED)
     Route: 065
  4. AMBISOME [Suspect]
     Active Substance: AMPHOTERICIN B
     Indication: BRONCHOPULMONARY ASPERGILLOSIS
     Route: 065
     Dates: start: 20120608
  5. VORICONAZOLE. [Suspect]
     Active Substance: VORICONAZOLE
     Indication: BRONCHOPULMONARY ASPERGILLOSIS
     Route: 065
     Dates: start: 20120525
  6. TACROLIMUS. [Suspect]
     Active Substance: TACROLIMUS
     Route: 065
  7. PREDNISONE. [Suspect]
     Active Substance: PREDNISONE
     Dosage: 20 MG, TWICE DAILY (DOSE REDUCED)
     Route: 065
  8. PREDNISONE. [Suspect]
     Active Substance: PREDNISONE
     Dosage: (20 + 10 MG), UNKNOWN FREQ.
     Route: 065
  9. TACROLIMUS. [Suspect]
     Active Substance: TACROLIMUS
     Indication: HEART TRANSPLANT
     Dosage: UNK UNK, UNKNOWN FREQ.
     Route: 065
  10. TACROLIMUS. [Suspect]
     Active Substance: TACROLIMUS
     Dosage: UNK UNK, UNKNOWN FREQ. (TEMPORARILY STOPPED)
     Route: 065
  11. VORICONAZOLE. [Suspect]
     Active Substance: VORICONAZOLE
     Route: 065
     Dates: start: 20120608
  12. MYCOPHENOLATE MOFETIL. [Suspect]
     Active Substance: MYCOPHENOLATE MOFETIL
     Route: 065
  13. VALGANCICLOVIR. [Concomitant]
     Active Substance: VALGANCICLOVIR
     Indication: PRODUCT USED FOR UNKNOWN INDICATION
     Route: 065
  14. PREDNISONE. [Suspect]
     Active Substance: PREDNISONE
     Route: 065

REACTIONS (15)
  - Device related sepsis [Unknown]
  - Sepsis [Fatal]
  - Immunosuppressant drug level increased [Unknown]
  - Respiratory tract infection [Unknown]
  - Respiratory failure [Unknown]
  - Arteriosclerosis coronary artery [Unknown]
  - Off label use [Unknown]
  - Leukopenia [Not Recovered/Not Resolved]
  - Cytomegalovirus infection [Unknown]
  - Drug ineffective [Fatal]
  - Neutropenia [Not Recovered/Not Resolved]
  - Altered state of consciousness [Unknown]
  - Renal impairment [Unknown]
  - Aspergillus infection [Not Recovered/Not Resolved]
  - Cardiac septal hypertrophy [Unknown]

NARRATIVE: CASE EVENT DATE: 20120608
